FAERS Safety Report 11191875 (Version 1)
Quarter: 2015Q2

REPORT INFORMATION
  Report Type: Spontaneous
  Country: CA (occurrence: CA)
  Receive Date: 20150616
  Receipt Date: 20150616
  Transmission Date: 20150821
  Serious: Yes (Disabling)
  Sender: FDA-Public Use
  Company Number: CA-HOSPIRA-2899172

PATIENT
  Age: 13 Year
  Sex: Male

DRUGS (7)
  1. CYCLOPHOSPHAMIDE. [Suspect]
     Active Substance: CYCLOPHOSPHAMIDE
     Indication: MEDULLOBLASTOMA
  2. MANNITOL. [Suspect]
     Active Substance: MANNITOL
     Indication: SUPPORTIVE CARE
  3. FUROSEMIDE. [Suspect]
     Active Substance: FUROSEMIDE
     Indication: SUPPORTIVE CARE
  4. CISPLATIN. [Suspect]
     Active Substance: CISPLATIN
     Indication: MEDULLOBLASTOMA
  5. LOMUSTINE. [Suspect]
     Active Substance: LOMUSTINE
     Indication: MEDULLOBLASTOMA
  6. VINCRISTINE SULFATE. [Suspect]
     Active Substance: VINCRISTINE SULFATE
     Indication: RADIOSENSITISATION THERAPY
     Dosage: WEEKLY
  7. VINCRISTINE SULFATE. [Suspect]
     Active Substance: VINCRISTINE SULFATE
     Indication: MEDULLOBLASTOMA

REACTIONS (3)
  - Deafness [Not Recovered/Not Resolved]
  - Ototoxicity [Not Recovered/Not Resolved]
  - Tinnitus [Not Recovered/Not Resolved]
